FAERS Safety Report 8529450-9 (Version None)
Quarter: 2012Q3

REPORT INFORMATION
  Report Type: 
  Country: None (occurrence: None)
  Receive Date: 20120723
  Receipt Date: 20120713
  Transmission Date: 20120928
  Serious: Yes (Hospitalization, Other)
  Sender: FDA-Public Use
  Company Number: US-ACCORD-013747

PATIENT
  Sex: Male

DRUGS (2)
  1. SIMVASTATIN [Suspect]
     Route: 048
     Dates: start: 20090101, end: 20120401
  2. SIMVASTATIN [Suspect]
     Route: 048
     Dates: start: 20120409, end: 20120506

REACTIONS (5)
  - OEDEMA [None]
  - BLOOD MAGNESIUM DECREASED [None]
  - HAEMOGLOBIN DECREASED [None]
  - BLOOD POTASSIUM DECREASED [None]
  - PANCREATITIS ACUTE [None]
